FAERS Safety Report 6405916-2 (Version None)
Quarter: 2009Q4

REPORT INFORMATION
  Report Type: 
  Country: None (occurrence: None)
  Receive Date: 20091016
  Receipt Date: 20091016
  Transmission Date: 20100525
  Serious: No
  Sender: FDA-Public Use
  Company Number: None

PATIENT
  Sex: Female
  Weight: 59.8748 kg

DRUGS (3)
  1. ONDANSETRON [Suspect]
     Indication: NAUSEA
     Dosage: ONE TAB ONCE PO
     Route: 048
     Dates: start: 20091013, end: 20091013
  2. ONDANSETRON [Suspect]
     Indication: VOMITING
     Dosage: ONE TAB ONCE PO
     Route: 048
     Dates: start: 20091013, end: 20091013
  3. ORAL CONTRACEPTIVES [Concomitant]

REACTIONS (2)
  - FACIAL SPASM [None]
  - MUSCLE TWITCHING [None]
